FAERS Safety Report 7206459-9 (Version None)
Quarter: 2010Q4

REPORT INFORMATION
  Report Type: 
  Country: None (occurrence: None)
  Receive Date: 20101217
  Receipt Date: 20101202
  Transmission Date: 20110411
  Serious: Yes (Other)
  Sender: FDA-Public Use
  Company Number: AUR-APL-2010-03116

PATIENT
  Age: 73 Year
  Sex: Male

DRUGS (2)
  1. TERBINAFINE HCL [Suspect]
     Indication: FUNGAL INFECTION
     Dosage: 250MG-DAILY-ORAL
     Route: 048
     Dates: start: 20100801, end: 20100909
  2. ACC-001 (ACC-001, QS-21) [Suspect]
     Indication: DEMENTIA ALZHEIMER'S TYPE
     Dosage: SQ

REACTIONS (8)
  - CYANOSIS [None]
  - DRUG HYPERSENSITIVITY [None]
  - IMMUNE COMPLEX LEVEL INCREASED [None]
  - PETECHIAE [None]
  - RASH [None]
  - SKIN EXFOLIATION [None]
  - SKIN FISSURES [None]
  - SKIN HAEMORRHAGE [None]
